FAERS Safety Report 13367145 (Version 1)
Quarter: 2017Q1

REPORT INFORMATION
  Report Type: Spontaneous
  Country: ES (occurrence: ES)
  Receive Date: 20170324
  Receipt Date: 20170324
  Transmission Date: 20170429
  Serious: Yes (Other)
  Sender: FDA-Public Use
  Company Number: ES-BAYER-2017-053239

PATIENT
  Age: 42 Year
  Sex: Male

DRUGS (3)
  1. SORAFENIB (RAF KINASE INHIBITOR) [Suspect]
     Active Substance: SORAFENIB
     Indication: HEPATOCELLULAR CARCINOMA
     Dosage: 400 MG, QD
     Route: 048
     Dates: start: 2011, end: 2011
  2. SORAFENIB (RAF KINASE INHIBITOR) [Suspect]
     Active Substance: SORAFENIB
     Indication: HEPATOCELLULAR CARCINOMA
     Dosage: 800 MG, QD
     Route: 048
     Dates: start: 201105, end: 201108
  3. SORAFENIB (RAF KINASE INHIBITOR) [Suspect]
     Active Substance: SORAFENIB
     Indication: HEPATOCELLULAR CARCINOMA
     Dosage: 200 MG, QD
     Route: 048
     Dates: start: 2011, end: 201206

REACTIONS (12)
  - Folliculitis [Recovered/Resolved]
  - Folliculitis [Recovered/Resolved]
  - Mobility decreased [Recovered/Resolved]
  - Pruritus [None]
  - Mobility decreased [Recovered/Resolved]
  - Mobility decreased [None]
  - Pain in extremity [Recovered/Resolved]
  - Pain in extremity [None]
  - Asthenia [None]
  - Folliculitis [None]
  - Pain in extremity [Recovered/Resolved]
  - Folliculitis [Recovered/Resolved]

NARRATIVE: CASE EVENT DATE: 2011
